FAERS Safety Report 21195649 (Version 3)
Quarter: 2022Q3

REPORT INFORMATION
  Report Type: Spontaneous
  Country: US (occurrence: US)
  Receive Date: 20220810
  Receipt Date: 20220915
  Transmission Date: 20221027
  Serious: No
  Sender: FDA-Public Use
  Company Number: US-PFIZER INC-202201045636

PATIENT
  Age: 75 Year
  Sex: Female
  Weight: 63.5 kg

DRUGS (4)
  1. PAXLOVID [Suspect]
     Active Substance: NIRMATRELVIR\RITONAVIR
     Indication: COVID-19 treatment
     Dosage: 10 MG, 2X/DAY
     Dates: start: 20220720, end: 2022
  2. BENZONATATE [Concomitant]
     Active Substance: BENZONATATE
     Dosage: UNK
     Dates: start: 20220718, end: 20220722
  3. CHLOR-TRIMETON [Concomitant]
     Active Substance: CHLORPHENIRAMINE MALEATE
     Indication: Hypersensitivity
     Dosage: UNK
     Dates: start: 20220718, end: 20220727
  4. ALBUTEROL [Concomitant]
     Active Substance: ALBUTEROL
     Indication: Asthma

REACTIONS (2)
  - COVID-19 [Recovered/Resolved]
  - Disease recurrence [Recovered/Resolved]

NARRATIVE: CASE EVENT DATE: 20220804
